FAERS Safety Report 15469781 (Version 11)
Quarter: 2021Q3

REPORT INFORMATION
  Report Type: Report from Study
  Country: None (occurrence: TR)
  Receive Date: 20181005
  Receipt Date: 20210929
  Transmission Date: 20211014
  Serious: Yes (Death, Hospitalization, Other)
  Sender: FDA-Public Use
  Company Number: TR-ABBVIE-18S-161-2509541-00

PATIENT
  Age: 71 Year
  Sex: Male
  Weight: 50 kg

DRUGS (11)
  1. RIVOTRIL [Concomitant]
     Active Substance: CLONAZEPAM
     Indication: PARKINSON^S DISEASE
     Route: 048
  2. PEXA XR [Concomitant]
     Indication: PARKINSON^S DISEASE
     Route: 048
     Dates: start: 202011
  3. SARS?COV?2 VACCINE [Concomitant]
     Indication: COVID-19 IMMUNISATION
     Dosage: SECOND DOSE WAS ADMINISTERED
     Route: 030
     Dates: start: 202104, end: 202104
  4. SARS?COV?2 VACCINE [Concomitant]
     Indication: COVID-19 IMMUNISATION
     Dosage: FIRST DOSE WAS ADMINISTERED
     Route: 030
     Dates: start: 20210312, end: 20210312
  5. SEROQUEL XR [Concomitant]
     Active Substance: QUETIAPINE FUMARATE
     Indication: PROPHYLAXIS
     Route: 048
  6. LUSTRAL [Concomitant]
     Active Substance: SERTRALINE HYDROCHLORIDE
     Indication: PARKINSON^S DISEASE
     Dosage: 2X1.5
     Route: 048
  7. SEROQUEL [Concomitant]
     Active Substance: QUETIAPINE FUMARATE
     Indication: PROPHYLAXIS
     Route: 048
  8. DUODOPA [Suspect]
     Active Substance: CARBIDOPA\LEVODOPA
     Indication: PARKINSON^S DISEASE
     Dosage: MD(ML): 12,50, CD(ML): 3,00, ED(ML): 1,00
     Route: 050
     Dates: start: 20160719
  9. DUODOPA [Suspect]
     Active Substance: CARBIDOPA\LEVODOPA
  10. LEPONEX [Concomitant]
     Active Substance: CLOZAPINE
     Indication: PROPHYLAXIS
     Route: 048
  11. EXELON [Concomitant]
     Active Substance: RIVASTIGMINE TARTRATE
     Indication: DEMENTIA ALZHEIMER^S TYPE
     Dosage: PATCH
     Route: 062

REACTIONS (14)
  - Gastric ulcer [Unknown]
  - Device kink [Recovered/Resolved]
  - Speech disorder [Not Recovered/Not Resolved]
  - Weight decreased [Recovered/Resolved]
  - Hypotension [Recovered/Resolved]
  - Vomiting [Recovered/Resolved]
  - Dysphagia [Not Recovered/Not Resolved]
  - Hypophagia [Recovered/Resolved]
  - COVID-19 [Fatal]
  - Gastrointestinal lymphoma [Recovered/Resolved]
  - Oral discharge [Recovered/Resolved]
  - Small intestinal obstruction [Recovered/Resolved]
  - Device issue [Unknown]
  - Gastric haemorrhage [Recovered/Resolved]

NARRATIVE: CASE EVENT DATE: 202002
